FAERS Safety Report 19401915 (Version 2)
Quarter: 2021Q2

REPORT INFORMATION
  Report Type: Report from Study
  Country: CA (occurrence: CA)
  Receive Date: 20210610
  Receipt Date: 20210623
  Transmission Date: 20210717
  Serious: Yes (Disabling, Other)
  Sender: FDA-Public Use
  Company Number: CA-BRISTOL-MYERS SQUIBB COMPANY-BMS-2021-044528

PATIENT
  Age: 59 Year
  Sex: Male

DRUGS (3)
  1. PREVACID [Concomitant]
     Active Substance: LANSOPRAZOLE
     Indication: PRODUCT USED FOR UNKNOWN INDICATION
     Dosage: UNK
     Route: 065
  2. FINASTERIDE. [Concomitant]
     Active Substance: FINASTERIDE
     Indication: PRODUCT USED FOR UNKNOWN INDICATION
     Route: 065
  3. NIVOLUMAB [Suspect]
     Active Substance: NIVOLUMAB
     Indication: OESOPHAGEAL CARCINOMA
     Dosage: 240 MILLIGRAM, Q2WK
     Route: 042
     Dates: start: 20210505

REACTIONS (7)
  - Vomiting [Unknown]
  - Oesophageal stenosis [Unknown]
  - Abdominal discomfort [Not Recovered/Not Resolved]
  - Dysphagia [Recovering/Resolving]
  - Dyspepsia [Not Recovered/Not Resolved]
  - Weight abnormal [Unknown]
  - Scar [Unknown]

NARRATIVE: CASE EVENT DATE: 20210505
